FAERS Safety Report 24004723 (Version 1)
Quarter: 2024Q2

REPORT INFORMATION
  Report Type: Spontaneous
  Country: CZ (occurrence: CZ)
  Receive Date: 20240624
  Receipt Date: 20240624
  Transmission Date: 20240716
  Serious: Yes (Other)
  Sender: FDA-Public Use
  Company Number: CZ-MLMSERVICE-20240607-PI020111-00165-1

PATIENT
  Age: 49 Year
  Sex: Male

DRUGS (4)
  1. GEMCITABINE [Suspect]
     Active Substance: GEMCITABINE
     Indication: Chemotherapy
     Dosage: 7 CYCLES
     Dates: start: 202205, end: 202211
  2. PACLITAXEL [Suspect]
     Active Substance: PACLITAXEL
     Indication: Palliative care
     Dosage: 7 CYCLES
     Dates: start: 202205, end: 202211
  3. PACLITAXEL [Suspect]
     Active Substance: PACLITAXEL
     Indication: Chemotherapy
     Dosage: 7 CYCLES
     Dates: start: 202205, end: 202211
  4. GEMCITABINE [Suspect]
     Active Substance: GEMCITABINE
     Indication: Palliative care
     Dosage: 7 CYCLES
     Dates: start: 202205, end: 202211

REACTIONS (3)
  - Haematotoxicity [Unknown]
  - Neuropathy peripheral [Unknown]
  - Neurotoxicity [Unknown]

NARRATIVE: CASE EVENT DATE: 20220101
